FAERS Safety Report 11529533 (Version 1)
Quarter: 2015Q3

REPORT INFORMATION
  Report Type: Spontaneous
  Country: US (occurrence: None)
  Receive Date: 20150918
  Receipt Date: 20150918
  Transmission Date: 20151125
  Serious: Yes (Other)
  Sender: FDA-Public Use
  Company Number: None

PATIENT
  Age: 72 Year
  Sex: Female
  Weight: 61.24 kg

DRUGS (7)
  1. ALPRAZOLAM TAB 0.25 MG QUALITEST [Suspect]
     Active Substance: ALPRAZOLAM
     Indication: ANXIETY
     Dosage: BY MOUTH
     Dates: start: 20150829
  2. XANAX [Concomitant]
     Active Substance: ALPRAZOLAM
  3. LISINOPRIL. [Concomitant]
     Active Substance: LISINOPRIL
  4. CALCIUM + D [Concomitant]
     Active Substance: CALCIUM\VITAMIN D
  5. ALPRAZOLAM TAB 0.25 MG QUALITEST [Suspect]
     Active Substance: ALPRAZOLAM
     Indication: PANIC ATTACK
     Dosage: BY MOUTH
     Dates: start: 20150829
  6. PAXIL [Concomitant]
     Active Substance: PAROXETINE HYDROCHLORIDE
  7. ATENOLOL. [Concomitant]
     Active Substance: ATENOLOL

REACTIONS (7)
  - Abdominal pain upper [None]
  - Product quality issue [None]
  - Drug effect decreased [None]
  - Therapeutic product ineffective [None]
  - Flatulence [None]
  - Nausea [None]
  - Constipation [None]

NARRATIVE: CASE EVENT DATE: 20150828
